FAERS Safety Report 10044376 (Version 2)
Quarter: 2014Q2

REPORT INFORMATION
  Report Type: Spontaneous
  Country: US (occurrence: US)
  Receive Date: 20140328
  Receipt Date: 20140424
  Transmission Date: 20141212
  Serious: Yes (Other)
  Sender: FDA-Public Use
  Company Number: US-ROCHE-1370034

PATIENT
  Age: 25 Year
  Sex: Female

DRUGS (6)
  1. XOLAIR [Suspect]
     Indication: ASTHMA
     Route: 058
     Dates: start: 20140319, end: 20140319
  2. XOLAIR [Suspect]
     Indication: ASTHMA
  3. DULERA [Concomitant]
  4. SYNTHROID [Concomitant]
  5. HYDROXYZINE [Concomitant]
  6. LORATADINE [Concomitant]

REACTIONS (8)
  - Dysphonia [Unknown]
  - Rhinorrhoea [Unknown]
  - Eye pruritus [Unknown]
  - Flushing [Unknown]
  - Pruritus generalised [Unknown]
  - Paraesthesia oral [Unknown]
  - Angioedema [Unknown]
  - Adverse drug reaction [Unknown]
